FAERS Safety Report 8095005-6 (Version None)
Quarter: 2012Q1

REPORT INFORMATION
  Report Type: 
  Country: None (occurrence: None)
  Receive Date: 20120131
  Receipt Date: 20120131
  Transmission Date: 20120608
  Serious: No
  Sender: FDA-Public Use
  Company Number: None

PATIENT
  Age: 62 Year
  Sex: Female
  Weight: 91.172 kg

DRUGS (1)
  1. BOTOX [Suspect]
     Indication: MIGRAINE
     Dosage: 31 INJECTIONS
     Route: 030
     Dates: start: 20111228, end: 20111228

REACTIONS (2)
  - VISUAL IMPAIRMENT [None]
  - EYELID PTOSIS [None]
